FAERS Safety Report 7994005-1 (Version None)
Quarter: 2011Q4

REPORT INFORMATION
  Report Type: 
  Country: None (occurrence: None)
  Receive Date: 20111215
  Receipt Date: 20111205
  Transmission Date: 20120403
  Serious: Yes (Other)
  Sender: FDA-Public Use
  Company Number: 2006JP005130

PATIENT
  Age: 10 Year
  Sex: Male
  Weight: 27.8 kg

DRUGS (8)
  1. PROGRAF [Suspect]
     Indication: CONGENITAL APLASTIC ANAEMIA
     Dosage: 0.03 MG/KG,
     Dates: start: 20051201
  2. ANTI-THYMOCYTE GLOBULIN NOS [Suspect]
     Indication: CONGENITAL APLASTIC ANAEMIA
     Dosage: 2.5 MG/KG, UID/QD, IV NOS
     Route: 042
     Dates: start: 20051128, end: 20051201
  3. PREDNISOLONE [Suspect]
     Indication: CONGENITAL APLASTIC ANAEMIA
     Dosage: 2 MG/KG,  IV NOS
     Route: 042
     Dates: start: 20051128
  4. CYCLOPHOSPHAMIDE [Suspect]
     Indication: CONGENITAL APLASTIC ANAEMIA
     Dosage: 10 MG/KG, UID/QD, IV NOS
     Route: 042
     Dates: start: 20051127, end: 20051130
  5. METHOTREXATE (METHOTREXATE SODIUM) INJECTION [Concomitant]
  6. PROGRAF [Suspect]
     Indication: CONGENITAL APLASTIC ANAEMIA
     Dosage: ORAL
     Route: 048
     Dates: end: 20061219
  7. PREDNISOLONE [Suspect]
     Indication: CONGENITAL APLASTIC ANAEMIA
     Dosage: ORAL
     Route: 048
  8. FLUDARABINE PHOSPHATE [Concomitant]

REACTIONS (8)
  - POSTERIOR REVERSIBLE ENCEPHALOPATHY SYNDROME [None]
  - CYTOMEGALOVIRUS INFECTION [None]
  - DRUG INEFFECTIVE [None]
  - CYSTITIS HAEMORRHAGIC [None]
  - TONIC CONVULSION [None]
  - CHRONIC GRAFT VERSUS HOST DISEASE [None]
  - HYPERTENSION [None]
  - TOXICITY TO VARIOUS AGENTS [None]
